FAERS Safety Report 18559203 (Version 2)
Quarter: 2020Q4

REPORT INFORMATION
  Report Type: Spontaneous
  Country: US (occurrence: US)
  Receive Date: 20201130
  Receipt Date: 20201207
  Transmission Date: 20210114
  Serious: No
  Sender: FDA-Public Use
  Company Number: US-009507513-2011USA014432

PATIENT
  Age: 37 Year
  Sex: Female

DRUGS (5)
  1. FOLLISTIM AQ [Suspect]
     Active Substance: FOLLITROPIN
     Indication: INFERTILITY
     Dosage: 150 IU, ONE TIME PER DAY; (DOSE FORM AND ROUTE REPORTED AS ^INJECTABLE^)
     Dates: start: 20201116
  2. GANIRELIX ACETATE INJECTION [Suspect]
     Active Substance: GANIRELIX ACETATE
     Indication: INFERTILITY
     Dosage: INJECTABLE, 1 TIMES PER DAY; (DOSE FORM AND ROUTE REPORTED AS ^INJECTABLE^)
     Dates: start: 20201120
  3. FOLLISTIM AQ [Suspect]
     Active Substance: FOLLITROPIN
  4. GANIRELIX ACETATE INJECTION [Suspect]
     Active Substance: GANIRELIX ACETATE
     Dosage: INJECTABLE, 1 TIMES PER DAY; (DOSE FORM AND ROUTE REPORTED AS ^INJECTABLE^)
     Dates: start: 20201121
  5. MENOPUR [Suspect]
     Active Substance: FOLLITROPIN\LUTEINIZING HORMONE
     Dosage: DAILY; ROUTE OF ADMINISTRATION: INJECTABLE  (UNSPECIFIED)
     Dates: start: 20201116

REACTIONS (3)
  - Nausea [Not Recovered/Not Resolved]
  - Abdominal pain upper [Not Recovered/Not Resolved]
  - In vitro fertilisation [Unknown]

NARRATIVE: CASE EVENT DATE: 202011
